FAERS Safety Report 6231654-5 (Version None)
Quarter: 2009Q2

REPORT INFORMATION
  Report Type: 
  Country: None (occurrence: None)
  Receive Date: 20090616
  Receipt Date: 20090605
  Transmission Date: 20091009
  Serious: Yes (Other)
  Sender: FDA-Public Use
  Company Number: US-JNJFOC-20090405717

PATIENT
  Sex: Female
  Weight: 61.24 kg

DRUGS (9)
  1. REMICADE [Suspect]
     Route: 042
  2. REMICADE [Suspect]
     Route: 042
  3. REMICADE [Suspect]
     Route: 042
  4. REMICADE [Suspect]
     Route: 042
  5. REMICADE [Suspect]
     Indication: CROHN'S DISEASE
     Dosage: 43 INFUSIONS ON UNSPECIFIED DATES
     Route: 042
  6. IMURAN [Suspect]
     Indication: CROHN'S DISEASE
  7. ASACOL [Concomitant]
  8. ZANTAC [Concomitant]
  9. FOLATE [Concomitant]

REACTIONS (1)
  - BREAST CANCER [None]
